FAERS Safety Report 10254700 (Version 1)
Quarter: 2014Q2

REPORT INFORMATION
  Report Type: Spontaneous
  Country: US (occurrence: None)
  Receive Date: 20140620
  Receipt Date: 20140620
  Transmission Date: 20141212
  Serious: Yes (Other)
  Sender: FDA-Public Use
  Company Number: None

PATIENT
  Age: 36 Year
  Sex: Male
  Weight: 70.76 kg

DRUGS (1)
  1. VPRIV [Suspect]
     Indication: GAUCHER^S DISEASE
     Dosage: 60UNITS/KG  EVERY 2 WEEKS INTRAVENOUS
     Route: 042
     Dates: start: 20140130, end: 20140619

REACTIONS (7)
  - Paraesthesia [None]
  - Chest discomfort [None]
  - Dizziness [None]
  - Flushing [None]
  - Ear discomfort [None]
  - Infusion related reaction [None]
  - Erythema [None]
